FAERS Safety Report 6894802-X (Version None)
Quarter: 2010Q3

REPORT INFORMATION
  Report Type: 
  Country: None (occurrence: None)
  Receive Date: 20100802
  Receipt Date: 20100722
  Transmission Date: 20110219
  Serious: Yes (Hospitalization)
  Sender: FDA-Public Use
  Company Number: FR-BAXTER-2010BH019812

PATIENT
  Age: 67 Year
  Sex: Male

DRUGS (7)
  1. ALBUMIN (HUMAN) [Suspect]
     Indication: CIRRHOSIS ALCOHOLIC
     Route: 042
     Dates: start: 20100702, end: 20100703
  2. ACUPAN [Concomitant]
  3. PERFALGAN [Concomitant]
  4. CEFOTAXIME SODIUM [Concomitant]
  5. AVLOCARDYL [Concomitant]
  6. ESOMEPRAZOLE MAGNESIUM [Concomitant]
  7. CORDARONE [Concomitant]

REACTIONS (1)
  - ACUTE PULMONARY OEDEMA [None]
